FAERS Safety Report 9636380 (Version 3)
Quarter: 2014Q1

REPORT INFORMATION
  Report Type: Spontaneous
  Country: CN (occurrence: CN)
  Receive Date: 20131021
  Receipt Date: 20140116
  Transmission Date: 20141002
  Serious: Yes (Other)
  Sender: FDA-Public Use
  Company Number: CN-PFIZER INC-2013299290

PATIENT
  Age: 58 Year
  Sex: Female
  Weight: 52 kg

DRUGS (2)
  1. SOLU-MEDROL [Suspect]
     Indication: PROPHYLAXIS
     Dosage: 500 MG
     Route: 042
     Dates: start: 20130916, end: 20130916
  2. SOLU-MEDROL [Suspect]
     Dosage: 500 MG
     Route: 041
     Dates: start: 20130924, end: 20130924

REACTIONS (9)
  - Anaphylactic shock [Recovering/Resolving]
  - Heart rate increased [Recovering/Resolving]
  - Blood pressure decreased [Recovering/Resolving]
  - Tachypnoea [Recovering/Resolving]
  - Rash erythematous [Recovering/Resolving]
  - Skin exfoliation [Recovering/Resolving]
  - Blood pressure increased [Recovering/Resolving]
  - Cough [Recovering/Resolving]
  - Tetany [Recovered/Resolved]
